FAERS Safety Report 4426937-5 (Version None)
Quarter: 2004Q3

REPORT INFORMATION
  Report Type: 
  Country: None (occurrence: None)
  Receive Date: 20040811
  Receipt Date: 20040730
  Transmission Date: 20050211
  Serious: Yes (Other)
  Sender: FDA-Public Use
  Company Number: HQWYE178313MAY03

PATIENT
  Age: 42 Year
  Sex: Female
  Weight: 48 kg

DRUGS (4)
  1. MYLOTARG [Suspect]
     Indication: ACUTE MYELOID LEUKAEMIA
     Dosage: 14 MG 1X PER 1 DAY, INTRAVENOUS
     Route: 042
     Dates: start: 20030428, end: 20030428
  2. TYLENOL [Concomitant]
  3. BENADRYL [Concomitant]
  4. COMPAZINE [Concomitant]

REACTIONS (9)
  - ASPARTATE AMINOTRANSFERASE INCREASED [None]
  - CHILLS [None]
  - EPISTAXIS [None]
  - HAEMOGLOBIN ABNORMAL [None]
  - HAEMORRHAGE [None]
  - METRORRHAGIA [None]
  - NEUTROPHIL COUNT DECREASED [None]
  - PLATELET COUNT ABNORMAL [None]
  - WHITE BLOOD CELL COUNT ABNORMAL [None]
